FAERS Safety Report 24299349 (Version 1)
Quarter: 2024Q3

REPORT INFORMATION
  Report Type: Spontaneous
  Country: CA (occurrence: CA)
  Receive Date: 20240909
  Receipt Date: 20240909
  Transmission Date: 20241016
  Serious: Yes (Hospitalization, Other)
  Sender: B BRAUN
  Company Number: CA-B.Braun Medical Inc.-2161394

PATIENT
  Age: 37 Year
  Sex: Female

DRUGS (5)
  1. HEPARIN SODIUM IN DEXTROSE [Suspect]
     Active Substance: HEPARIN SODIUM
  2. BETAMETHASONE [Suspect]
     Active Substance: BETAMETHASONE
  3. SILDENAFIL [Suspect]
     Active Substance: SILDENAFIL
  4. EPOPROSTENOL [Suspect]
     Active Substance: EPOPROSTENOL
  5. EPINEPHRINE [Suspect]
     Active Substance: EPINEPHRINE

REACTIONS (6)
  - Condition aggravated [Unknown]
  - Right ventricular failure [Unknown]
  - Premature delivery [Unknown]
  - Hypoxia [Unknown]
  - Hypotension [Unknown]
  - Exposure during pregnancy [Unknown]
